FAERS Safety Report 9104793 (Version 1)
Quarter: 2013Q1

REPORT INFORMATION
  Report Type: Spontaneous
  Country: FR (occurrence: FR)
  Receive Date: 20130220
  Receipt Date: 20130220
  Transmission Date: 20140127
  Serious: Yes (Death)
  Sender: FDA-Public Use
  Company Number: FR-ROCHE-1192337

PATIENT
  Sex: Female

DRUGS (7)
  1. VEMURAFENIB [Suspect]
     Indication: MALIGNANT MELANOMA
     Dosage: 4 DF
     Route: 048
     Dates: start: 20110912, end: 20120529
  2. DOLIPRANE [Concomitant]
  3. ACUPAN [Concomitant]
  4. ZOPHREN [Concomitant]
  5. XANAX [Concomitant]
  6. PRIMPERAN (FRANCE) [Concomitant]
  7. SOLU-MEDROL [Concomitant]
     Route: 065

REACTIONS (2)
  - Radiation injury [Fatal]
  - Disease progression [Fatal]
